FAERS Safety Report 13570338 (Version 1)
Quarter: 2017Q2

REPORT INFORMATION
  Report Type: Spontaneous
  Country: US (occurrence: US)
  Receive Date: 20170522
  Receipt Date: 20170522
  Transmission Date: 20170830
  Serious: Yes (Hospitalization)
  Sender: FDA-Public Use
  Company Number: US-VIFOR (INTERNATIONAL) INC.-VIT-2016-07975

PATIENT
  Age: 79 Year
  Sex: Male
  Weight: 95 kg

DRUGS (18)
  1. SODIUM BICARBONATE. [Concomitant]
     Active Substance: SODIUM BICARBONATE
  2. LEVEMIR [Concomitant]
     Active Substance: INSULIN DETEMIR
  3. NEUPRO [Concomitant]
     Active Substance: ROTIGOTINE
  4. DUTASTERIDE/TAMSULOSIN HYDROCHLORIDE [Concomitant]
  5. PARACETAMOL/HYDROCODONE BITARTRATE [Concomitant]
  6. PANTOPRAZOLE SODIUM SESQUIHYDRATE [Concomitant]
     Active Substance: PANTOPRAZOLE SODIUM
  7. GUANFACINE HYDROCHLORIDE. [Concomitant]
     Active Substance: GUANFACINE HYDROCHLORIDE
  8. SIMVASTATIN. [Concomitant]
     Active Substance: SIMVASTATIN
  9. VELTASSA [Suspect]
     Active Substance: PATIROMER
     Indication: HYPERKALAEMIA
     Route: 048
     Dates: start: 20160602, end: 2016
  10. ROPINIROLE HYDROCHLORIDE. [Concomitant]
     Active Substance: ROPINIROLE HYDROCHLORIDE
  11. ESCITALOPRAM OXALATE. [Concomitant]
     Active Substance: ESCITALOPRAM OXALATE
  12. ISOSORBIDE MONONITRATE. [Concomitant]
     Active Substance: ISOSORBIDE MONONITRATE
  13. TRAMADOL HYDROCHLORIDE. [Concomitant]
     Active Substance: TRAMADOL HYDROCHLORIDE
  14. NIFEDIPINE. [Concomitant]
     Active Substance: NIFEDIPINE
  15. FERRIC X 150 [Concomitant]
  16. METOPROLOL TARTRATE. [Concomitant]
     Active Substance: METOPROLOL TARTRATE
  17. FUROSEMIDE. [Concomitant]
     Active Substance: FUROSEMIDE
  18. IMIPRAMINE HYDROCHLORIDE. [Concomitant]
     Active Substance: IMIPRAMINE HYDROCHLORIDE

REACTIONS (5)
  - Inappropriate schedule of drug administration [Unknown]
  - Blood glucose decreased [Unknown]
  - Haemoglobin decreased [Unknown]
  - Atrioventricular block [Unknown]
  - Chest discomfort [Not Recovered/Not Resolved]

NARRATIVE: CASE EVENT DATE: 20160602
